FAERS Safety Report 8612287-X (Version None)
Quarter: 2012Q3

REPORT INFORMATION
  Report Type: 
  Country: None (occurrence: None)
  Receive Date: 20120822
  Receipt Date: 20120807
  Transmission Date: 20120928
  Serious: Yes (Life-Threatening)
  Sender: FDA-Public Use
  Company Number: US-INCYTE CORPORATION-2012IN001475

PATIENT
  Age: 19 Year
  Sex: Male
  Weight: 63.7 kg

DRUGS (3)
  1. INCB018424 [Suspect]
     Indication: BONE SARCOMA
     Dosage: 90 MG, BID
     Route: 048
     Dates: start: 20120709, end: 20120723
  2. INCB018424 [Suspect]
     Dosage: 65 MG, BID
     Route: 048
     Dates: start: 20120802
  3. FORMULA 1 NUTRITIONAL SHAKE MIX [Suspect]
     Indication: SUPPLEMENTATION THERAPY
     Dosage: UNK
     Dates: end: 20120723

REACTIONS (3)
  - ALANINE AMINOTRANSFERASE INCREASED [None]
  - BLOOD CREATINE PHOSPHOKINASE INCREASED [None]
  - ASPARTATE AMINOTRANSFERASE INCREASED [None]
